FAERS Safety Report 9194152 (Version 1)
Quarter: 2013Q1

REPORT INFORMATION
  Report Type: Spontaneous
  Country: US (occurrence: US)
  Receive Date: 20130327
  Receipt Date: 20130327
  Transmission Date: 20140127
  Serious: Yes (Death)
  Sender: FDA-Public Use
  Company Number: CHPA2013US005320

PATIENT
  Age: 73 Year
  Sex: Male

DRUGS (1)
  1. MYOFLEX ANALGESIC CREME [Suspect]
     Indication: MUSCLE SPASMS
     Dosage: UNK, UNK
     Route: 061
     Dates: start: 1997, end: 1998

REACTIONS (2)
  - Death [Fatal]
  - Off label use [Unknown]
